FAERS Safety Report 23230640 (Version 1)
Quarter: 2023Q4

REPORT INFORMATION
  Report Type: Spontaneous
  Country: US (occurrence: None)
  Receive Date: 20231123
  Receipt Date: 20231123
  Transmission Date: 20240109
  Serious: Yes (unspecified)
  Sender: FDA-Public Use
  Company Number: None

PATIENT
  Age: 82 Year
  Sex: Female
  Weight: 58.5 kg

DRUGS (16)
  1. ALENDRONATE SODIUM [Suspect]
     Active Substance: ALENDRONATE SODIUM
     Indication: Osteoporosis
     Dosage: OTHER QUANTITY : 4 TABLET(S);?OTHER FREQUENCY : WEEKLY;?
     Route: 048
     Dates: start: 20230923, end: 20230923
  2. walker [Concomitant]
  3. CARBIDOPA LEVODOPA [Concomitant]
     Active Substance: CARBIDOPA\LEVODOPA
  4. GABAPENTIN [Concomitant]
     Active Substance: GABAPENTIN
  5. RYTARY [Concomitant]
     Active Substance: CARBIDOPA\LEVODOPA
  6. TRAZODONE [Concomitant]
     Active Substance: TRAZODONE HYDROCHLORIDE
  7. TROSPIUM [Concomitant]
     Active Substance: TROSPIUM
  8. CALCIUM [Concomitant]
     Active Substance: CALCIUM
  9. multi vitamin [Concomitant]
  10. VITAMIN D [Concomitant]
     Active Substance: VITAMIN D NOS
  11. VITAMIN C [Concomitant]
     Active Substance: ASCORBIC ACID
  12. CRANBERRY [Concomitant]
     Active Substance: CRANBERRY
  13. FISH OIL [Concomitant]
     Active Substance: FISH OIL
  14. PROBIOTICS NOS [Concomitant]
     Active Substance: PROBIOTICS NOS
  15. MELATONIN [Concomitant]
     Active Substance: MELATONIN
  16. walker [Concomitant]

REACTIONS (2)
  - Depressed level of consciousness [None]
  - Fatigue [None]

NARRATIVE: CASE EVENT DATE: 20230923
